FAERS Safety Report 17213164 (Version 1)
Quarter: 2020Q1

REPORT INFORMATION
  Report Type: Spontaneous
  Country: US (occurrence: US)
  Receive Date: 20191227
  Receipt Date: 20191227
  Transmission Date: 20200409
  Serious: Yes (Death)
  Sender: FDA-Public Use
  Company Number: None

PATIENT
  Age: 65 Year
  Sex: Male
  Weight: 94.32 kg

DRUGS (5)
  1. MEKTOVI [Suspect]
     Active Substance: BINIMETINIB
     Indication: MALIGNANT MELANOMA
     Route: 048
     Dates: start: 20191030
  2. ADVIL [Concomitant]
     Active Substance: IBUPROFEN
  3. AREDS [Concomitant]
     Active Substance: MINERALS\VITAMINS
  4. LORAZEPAM. [Concomitant]
     Active Substance: LORAZEPAM
  5. BRAFTOVI [Suspect]
     Active Substance: ENCORAFENIB
     Indication: MALIGNANT MELANOMA
     Route: 048
     Dates: start: 20191030

REACTIONS (1)
  - Death [None]

NARRATIVE: CASE EVENT DATE: 20191219
